FAERS Safety Report 5217489-0 (Version None)
Quarter: 2007Q1

REPORT INFORMATION
  Report Type: 
  Country: None (occurrence: None)
  Receive Date: 20070124
  Receipt Date: 20070109
  Transmission Date: 20070707
  Serious: Yes (Other)
  Sender: FDA-Public Use
  Company Number: US-SANOFI-SYNTHELABO-A03200700452

PATIENT
  Sex: Male

DRUGS (8)
  1. TAMSULOSIN HCL [Concomitant]
     Route: 048
  2. PHENYTOIN SODIUM CAP [Concomitant]
     Dosage: 100 MG (2 CAPSULES) BID
     Route: 048
  3. NITROGLYCERIN [Concomitant]
     Route: 061
  4. NITROGLYCERIN [Concomitant]
     Route: 060
  5. LAMOTRIGINE [Concomitant]
     Route: 048
  6. LOVASTATIN [Concomitant]
     Route: 048
  7. ATENOLOL [Concomitant]
     Dosage: 50 MG (2 TABLETS) BID
     Route: 048
  8. PLAVIX [Suspect]
     Indication: DRUG USE FOR UNKNOWN INDICATION
     Route: 048
     Dates: start: 20010207

REACTIONS (10)
  - AMNESIA [None]
  - ANTICONVULSANT DRUG LEVEL INCREASED [None]
  - ASTHENIA [None]
  - CONVULSION [None]
  - FEELING HOT AND COLD [None]
  - HYPOAESTHESIA [None]
  - LIP SWELLING [None]
  - MUSCULOSKELETAL PAIN [None]
  - PARAESTHESIA [None]
  - TREMOR [None]
